FAERS Safety Report 13544037 (Version 1)
Quarter: 2017Q2

REPORT INFORMATION
  Report Type: Spontaneous
  Country: US (occurrence: US)
  Receive Date: 20170512
  Receipt Date: 20170512
  Transmission Date: 20170830
  Serious: Yes (Hospitalization)
  Sender: FDA-Public Use
  Company Number: None

PATIENT
  Age: 64 Year
  Sex: Male

DRUGS (8)
  1. OMERPRAZOLE [Concomitant]
     Active Substance: OMEPRAZOLE
  2. LUTERA [Concomitant]
     Active Substance: ETHINYL ESTRADIOL\LEVONORGESTREL
  3. SINGULAIR [Concomitant]
     Active Substance: MONTELUKAST SODIUM
  4. RIFAXIMIN [Concomitant]
     Active Substance: RIFAXIMIN
  5. LACTULOSE SPIRONOLACTONE [Concomitant]
  6. LASIX [Concomitant]
     Active Substance: FUROSEMIDE
  7. ALBUTEROL SULFATE. [Concomitant]
     Active Substance: ALBUTEROL SULFATE
  8. ADCIRCA [Suspect]
     Active Substance: TADALAFIL
     Indication: PULMONARY ARTERIAL HYPERTENSION
     Route: 048

REACTIONS (1)
  - Liver disorder [None]
